FAERS Safety Report 10839010 (Version 2)
Quarter: 2015Q2

REPORT INFORMATION
  Report Type: Spontaneous
  Country: JP (occurrence: JP)
  Receive Date: 20150220
  Receipt Date: 20150602
  Transmission Date: 20150821
  Serious: Yes (Life-Threatening)
  Sender: FDA-Public Use
  Company Number: JP-ROCHE-1540972

PATIENT
  Age: 63 Year
  Sex: Male
  Weight: 70 kg

DRUGS (13)
  1. CARBOPLATIN. [Concomitant]
     Active Substance: CARBOPLATIN
     Indication: NON-SMALL CELL LUNG CANCER
     Route: 041
     Dates: start: 20140711, end: 20141016
  2. LYRICA [Concomitant]
     Active Substance: PREGABALIN
     Indication: HYPOAESTHESIA
     Route: 048
     Dates: start: 201408
  3. AVASTIN [Suspect]
     Active Substance: BEVACIZUMAB
     Indication: NON-SMALL CELL LUNG CANCER
     Dosage: DOSE INTERVAL: 3-4 WEEKS, MOST RECENT DOSE ON 13/JAN/2015 PRIOR TO EVENT
     Route: 041
     Dates: start: 20140711
  4. CARBOPLATIN. [Concomitant]
     Active Substance: CARBOPLATIN
     Route: 041
     Dates: start: 20141017, end: 20141106
  5. PACLITAXEL. [Concomitant]
     Active Substance: PACLITAXEL
     Route: 041
     Dates: start: 20141017, end: 20141106
  6. METHYCOBAL [Concomitant]
     Active Substance: METHYLCOBALAMIN
     Indication: HYPOAESTHESIA
     Route: 048
     Dates: start: 201407
  7. CALONAL [Concomitant]
     Active Substance: ACETAMINOPHEN
     Indication: PAIN
     Dosage: AMOUNT OF 1 ONCE ADMINISTRATION: 400 (UNIT UNCERTAINTY)
     Route: 048
     Dates: start: 201408
  8. VOLTAREN [Concomitant]
     Active Substance: DICLOFENAC SODIUM
     Indication: HYPOAESTHESIA
     Route: 048
     Dates: start: 201409, end: 201502
  9. MAGNESIUM OXIDE. [Concomitant]
     Active Substance: MAGNESIUM OXIDE
     Indication: CONSTIPATION
     Route: 048
     Dates: start: 201407
  10. PACLITAXEL. [Concomitant]
     Active Substance: PACLITAXEL
     Indication: NON-SMALL CELL LUNG CANCER
     Route: 041
     Dates: start: 20140711, end: 20141016
  11. BAYASPIRIN [Concomitant]
     Active Substance: ASPIRIN
     Indication: INTRACRANIAL ANEURYSM
     Dosage: AMOUNT OF 1 ONCE ADMINISTRATION: 100 (UNIT UNCERTAINTY)
     Route: 048
     Dates: start: 2010
  12. MUCOSTA [Concomitant]
     Active Substance: REBAMIPIDE
     Dosage: AMOUNT OF 1 ONCE ADMINISTRATION: 100 (UNIT UNCERTAINTY)
     Route: 048
     Dates: start: 201407
  13. NEXIUM [Concomitant]
     Active Substance: ESOMEPRAZOLE MAGNESIUM
     Route: 048
     Dates: start: 201407

REACTIONS (1)
  - Lung disorder [Recovered/Resolved with Sequelae]

NARRATIVE: CASE EVENT DATE: 20150205
